FAERS Safety Report 23916742 (Version 3)
Quarter: 2024Q2

REPORT INFORMATION
  Report Type: Report from Study
  Country: US (occurrence: US)
  Receive Date: 20240529
  Receipt Date: 20240617
  Transmission Date: 20240717
  Serious: No
  Sender: FDA-Public Use
  Company Number: US-APELLIS PHARMACEUTICALS-APL-2024-004127

PATIENT
  Weight: 97.069 kg

DRUGS (8)
  1. PEGCETACOPLAN [Suspect]
     Active Substance: PEGCETACOPLAN
     Indication: Paroxysmal nocturnal haemoglobinuria
     Dosage: 1080 MILLIGRAM, TWICE WEEKLY
     Route: 058
     Dates: start: 20210612, end: 20240515
  2. PEGCETACOPLAN [Suspect]
     Active Substance: PEGCETACOPLAN
     Dosage: 1080MG 2 TIMES PER WEEK
     Route: 058
     Dates: start: 20210621, end: 20240515
  3. PREDNISONE [Concomitant]
     Active Substance: PREDNISONE
     Indication: Product used for unknown indication
     Dosage: DAILY
     Route: 048
  4. METOPROLOL [Concomitant]
     Active Substance: METOPROLOL
     Indication: Product used for unknown indication
  5. CYMBALTA [Concomitant]
     Active Substance: DULOXETINE HYDROCHLORIDE
     Indication: Arthralgia
     Dosage: DAILY AT NIGHT
     Dates: start: 20240420
  6. METFORMIN [Concomitant]
     Active Substance: METFORMIN HYDROCHLORIDE
     Indication: Blood glucose abnormal
     Dosage: TWICE A DAY
     Dates: start: 20240420
  7. PREDNISONE [Concomitant]
     Active Substance: PREDNISONE
     Indication: Product used for unknown indication
     Dosage: DAILY
  8. FABHALTA [Concomitant]
     Active Substance: IPTACOPAN HYDROCHLORIDE
     Indication: Paroxysmal nocturnal haemoglobinuria
     Dosage: TWICE A DAY
     Route: 048
     Dates: start: 20240429

REACTIONS (4)
  - Injection site discharge [Recovered/Resolved]
  - Weight decreased [Unknown]
  - Arthralgia [Unknown]
  - Fatigue [Not Recovered/Not Resolved]

NARRATIVE: CASE EVENT DATE: 20240219
